FAERS Safety Report 10042634 (Version 1)
Quarter: 2014Q1

REPORT INFORMATION
  Report Type: Spontaneous
  Country: IT (occurrence: IT)
  Receive Date: 20140327
  Receipt Date: 20140327
  Transmission Date: 20141002
  Serious: Yes (Hospitalization)
  Sender: FDA-Public Use
  Company Number: IT-PFIZER INC-2014087995

PATIENT
  Age: 39 Year
  Sex: Female

DRUGS (1)
  1. XANAX [Suspect]
     Dosage: 15 MG, TOTAL
     Route: 048
     Dates: start: 20130726, end: 20130726

REACTIONS (3)
  - Drug abuse [Recovering/Resolving]
  - Alanine aminotransferase abnormal [Recovering/Resolving]
  - Blood creatine phosphokinase MB increased [Recovering/Resolving]
